FAERS Safety Report 8443176-1 (Version None)
Quarter: 2012Q2

REPORT INFORMATION
  Report Type: 
  Country: None (occurrence: None)
  Receive Date: 20120616
  Receipt Date: 20120605
  Transmission Date: 20120825
  Serious: Yes (Hospitalization, Other)
  Sender: FDA-Public Use
  Company Number: JP-VERTEX PHARMACEUTICALS INC.-AE-2012-007340

PATIENT
  Age: 67 Year
  Sex: Male

DRUGS (13)
  1. TELAVIC (TELAPREVIR) [Suspect]
     Indication: HEPATITIS C
     Route: 048
     Dates: start: 20120404, end: 20120514
  2. PEG-INTRON [Concomitant]
     Dates: start: 20120516
  3. MUCOSTA [Concomitant]
     Route: 048
  4. PEG-INTRON [Concomitant]
     Indication: HEPATITIS C
     Dates: start: 20120403, end: 20120515
  5. AMLODIPINE BESYLATE [Concomitant]
     Route: 048
  6. REBETOL [Concomitant]
     Route: 048
     Dates: start: 20120426
  7. LANSOPRAZOLE [Concomitant]
     Route: 048
  8. JANUVIA [Concomitant]
     Route: 048
  9. REBETOL [Concomitant]
     Route: 048
     Dates: start: 20120417, end: 20120425
  10. LENDORMIN D [Concomitant]
     Route: 048
  11. REBETOL [Concomitant]
     Indication: HEPATITIS C
     Route: 048
     Dates: start: 20120403, end: 20120416
  12. MARZULENE-S [Concomitant]
     Route: 048
  13. LOXONIN [Concomitant]

REACTIONS (7)
  - DIZZINESS [None]
  - VOMITING [None]
  - RENAL IMPAIRMENT [None]
  - MALAISE [None]
  - HAEMOGLOBIN DECREASED [None]
  - DRUG ERUPTION [None]
  - PLATELET COUNT DECREASED [None]
